FAERS Safety Report 16062099 (Version 1)
Quarter: 2019Q1

REPORT INFORMATION
  Report Type: Spontaneous
  Country: US (occurrence: US)
  Receive Date: 20190312
  Receipt Date: 20190312
  Transmission Date: 20190418
  Serious: No
  Sender: FDA-Public Use
  Company Number: US-ENDO PHARMACEUTICALS INC-2018-042152

PATIENT
  Sex: Female

DRUGS (1)
  1. HYDROXYUREA. [Suspect]
     Active Substance: HYDROXYUREA
     Indication: PRODUCT USED FOR UNKNOWN INDICATION
     Dosage: 500 MG, 1 DAILY MONDAY TO FRIDAY, 2 DAILY SATURDAY AND SUNDAY
     Route: 048
     Dates: start: 201612

REACTIONS (2)
  - Drug effect decreased [Unknown]
  - Platelet count increased [Unknown]
